FAERS Safety Report 6971138-X (Version None)
Quarter: 2010Q3

REPORT INFORMATION
  Report Type: 
  Country: None (occurrence: None)
  Receive Date: 20100908
  Receipt Date: 20100901
  Transmission Date: 20110219
  Serious: Yes (Other)
  Sender: FDA-Public Use
  Company Number: JP-MERCK-1009USA00449

PATIENT
  Age: 73 Year
  Sex: Male

DRUGS (5)
  1. JANUVIA [Suspect]
     Indication: DIABETES MELLITUS
     Dosage: DIVIDED DOSE FREQUENCY U
     Route: 048
     Dates: start: 20100607
  2. GLIMICRON [Concomitant]
     Indication: DIABETES MELLITUS
     Dosage: DIVIDED DOSE FREQUENCY U
     Route: 048
  3. TAKEPRON [Concomitant]
     Indication: GASTRITIS
     Dosage: DIVIDED DOSE FREQUENCY U
     Route: 048
  4. AMOBAN [Concomitant]
     Indication: INSOMNIA
     Dosage: DIVIDED DOSE FREQUENCY U
     Route: 048
  5. KARY UNI [Concomitant]
     Route: 047

REACTIONS (1)
  - MACULAR OEDEMA [None]
